FAERS Safety Report 10879547 (Version 1)
Quarter: 2015Q1

REPORT INFORMATION
  Report Type: Spontaneous
  Country: US (occurrence: None)
  Receive Date: 20150224
  Receipt Date: 20150224
  Transmission Date: 20150721
  Serious: Yes (Hospitalization)
  Sender: FDA-Public Use
  Company Number: None

PATIENT
  Age: 53 Year
  Sex: Female
  Weight: 104.89 kg

DRUGS (12)
  1. LEVOTHYROXINE [Concomitant]
     Active Substance: LEVOTHYROXINE
  2. ZYRTEC [Concomitant]
     Active Substance: CETIRIZINE HYDROCHLORIDE
  3. ALBUTEROL. [Concomitant]
     Active Substance: ALBUTEROL
  4. CLONOPIN [Concomitant]
     Active Substance: CLONAZEPAM
  5. AUGMENTIN [Concomitant]
     Active Substance: AMOXICILLIN\CLAVULANATE POTASSIUM
  6. TAXOL [Suspect]
     Active Substance: PACLITAXEL
     Dates: end: 20150129
  7. ASPIRIN. [Concomitant]
     Active Substance: ASPIRIN
  8. TYLENOL [Concomitant]
     Active Substance: ACETAMINOPHEN
  9. MORPHINE [Concomitant]
     Active Substance: MORPHINE
  10. SINGULAIR [Concomitant]
     Active Substance: MONTELUKAST SODIUM
  11. CALTRATE [Concomitant]
     Active Substance: CALCIUM CARBONATE
  12. OMEPRAZOLE. [Concomitant]
     Active Substance: OMEPRAZOLE

REACTIONS (14)
  - Pyrexia [None]
  - Tracheitis [None]
  - Abdominal pain [None]
  - Thyroid mass [None]
  - Bronchial obstruction [None]
  - Device dislocation [None]
  - Procedural haemorrhage [None]
  - Myalgia [None]
  - Dyspnoea [None]
  - Pulmonary mass [None]
  - Condition aggravated [None]
  - Oropharyngeal pain [None]
  - Anxiety [None]
  - Aspiration [None]

NARRATIVE: CASE EVENT DATE: 20150211
